FAERS Safety Report 11766755 (Version 5)
Quarter: 2016Q1

REPORT INFORMATION
  Report Type: Spontaneous
  Country: GB (occurrence: GB)
  Receive Date: 20151123
  Receipt Date: 20160331
  Transmission Date: 20160525
  Serious: Yes (Other)
  Sender: FDA-Public Use
  Company Number: GB-TEVA-609321ACC

PATIENT
  Age: 66 Year
  Sex: Female
  Weight: 63 kg

DRUGS (18)
  1. QUININE SULFATE. [Concomitant]
     Active Substance: QUININE SULFATE
     Indication: MUSCLE SPASMS
     Dosage: 200 MILLIGRAM DAILY; 200 MG, 1X/DAY AT NIGHT
     Dates: start: 20090406
  2. SERTRALINE HYDROCHLORIDE. [Suspect]
     Active Substance: SERTRALINE HYDROCHLORIDE
     Indication: STRESS
     Dosage: 50 MILLIGRAM DAILY; 50MG, DAILY
     Route: 048
     Dates: start: 20140114, end: 20141203
  3. SERTRALINE HYDROCHLORIDE. [Suspect]
     Active Substance: SERTRALINE HYDROCHLORIDE
     Dosage: 75 MILLIGRAM DAILY; 75 MG, DAILY
     Route: 048
     Dates: start: 20140729, end: 20141013
  4. ACICLOVIR [Concomitant]
     Active Substance: ACYCLOVIR
     Dosage: 10G, UNK
     Dates: start: 20120328
  5. IBUPROFEN. [Concomitant]
     Active Substance: IBUPROFEN
     Dosage: 600 MILLIGRAM DAILY; 200 MG, 3X/DAY
     Route: 048
     Dates: start: 20110325
  6. FULTIUM-D3 [Concomitant]
     Indication: MYALGIA
     Dosage: 800 IU (INTERNATIONAL UNIT) DAILY; 800 UNITS, 1X/DAY
     Route: 048
     Dates: start: 20140129
  7. LANSOPRAZOLE. [Concomitant]
     Active Substance: LANSOPRAZOLE
     Indication: ABDOMINAL DISCOMFORT
     Dosage: 15 MILLIGRAM DAILY; 15 MG, 1X/DAY
     Dates: start: 20091201
  8. ZOPICLONE [Concomitant]
     Active Substance: ZOPICLONE
     Dosage: 3.75 MILLIGRAM DAILY; 3.75 MG, 1X/DAY (NIGHT)
     Dates: start: 20140729
  9. ATORVASTATIN [Concomitant]
     Active Substance: ATORVASTATIN
     Indication: ANGINA PECTORIS
     Dosage: 5 MILLIGRAM DAILY; 1/2 X 10 MG, 1X/DAY
     Route: 048
     Dates: start: 20030702
  10. FULTIUM-D3 [Concomitant]
     Indication: SKIN CANCER
  11. SERTRALINE HYDROCHLORIDE. [Suspect]
     Active Substance: SERTRALINE HYDROCHLORIDE
     Indication: DEPRESSION
     Route: 048
     Dates: start: 2013
  12. SERTRALINE HYDROCHLORIDE. [Suspect]
     Active Substance: SERTRALINE HYDROCHLORIDE
     Dosage: 50 MILLIGRAM DAILY; 50 MG, 1X/DAY
     Route: 048
     Dates: start: 20140604, end: 20140728
  13. BISOPROLOL [Concomitant]
     Active Substance: BISOPROLOL
     Indication: ANGINA PECTORIS
     Dosage: 2.5 MILLIGRAM DAILY; 2.5 MG, 1X/DAY
     Route: 048
     Dates: start: 20070711
  14. ASPIRIN. [Concomitant]
     Active Substance: ASPIRIN
     Indication: MYOCARDIAL ISCHAEMIA
  15. GLYCERYL TRINITRATE [Concomitant]
     Active Substance: NITROGLYCERIN
     Dosage: 400 UG, UNK
     Route: 060
  16. IBUPROFEN. [Concomitant]
     Active Substance: IBUPROFEN
     Indication: FIBROMYALGIA
     Dosage: 100 G, AS DIRECTED
     Dates: start: 20120918
  17. ASPIRIN. [Concomitant]
     Active Substance: ASPIRIN
     Indication: ANGINA PECTORIS
     Dosage: 75 MG, ALTERNATIVE DAYS
     Route: 048
  18. ATORVASTATIN [Concomitant]
     Active Substance: ATORVASTATIN
     Indication: MYOCARDIAL ISCHAEMIA

REACTIONS (5)
  - Feeling abnormal [Unknown]
  - Social problem [Unknown]
  - Emotional distress [Not Recovered/Not Resolved]
  - Facial nerve disorder [Not Recovered/Not Resolved]
  - Eyelid ptosis [Not Recovered/Not Resolved]

NARRATIVE: CASE EVENT DATE: 201409
